FAERS Safety Report 13306025 (Version 1)
Quarter: 2017Q1

REPORT INFORMATION
  Report Type: Spontaneous
  Country: CA (occurrence: CA)
  Receive Date: 20170308
  Receipt Date: 20170308
  Transmission Date: 20170428
  Serious: Yes (Other)
  Sender: FDA-Public Use
  Company Number: CA-JNJFOC-20170303031

PATIENT
  Age: 61 Year
  Sex: Female

DRUGS (2)
  1. REOPRO [Suspect]
     Active Substance: ABCIXIMAB
     Indication: THROMBOSIS
     Route: 013
  2. HEPARIN [Suspect]
     Active Substance: HEPARIN SODIUM
     Indication: COAGULATION TIME
     Route: 042

REACTIONS (4)
  - Aneurysm recanalisation [Unknown]
  - Incorrect route of drug administration [Unknown]
  - Product use issue [Unknown]
  - Off label use [Unknown]
